FAERS Safety Report 9286372 (Version 2)
Quarter: 2014Q1

REPORT INFORMATION
  Report Type: Spontaneous
  Country: US (occurrence: US)
  Receive Date: 20130513
  Receipt Date: 20140102
  Transmission Date: 20141002
  Serious: Yes (Hospitalization)
  Sender: FDA-Public Use
  Company Number: US-BAYER-2013-058376

PATIENT
  Age: 18 Year
  Sex: Female

DRUGS (8)
  1. YAZ [Suspect]
     Dosage: UNK
     Dates: start: 200901, end: 200902
  2. NAPROXEN SODIUM [Concomitant]
     Dosage: 550 MG, UNK
  3. ANAPROX DS [Concomitant]
     Dosage: 550 MG, UNK
  4. TORADOL [Concomitant]
     Indication: PAIN
     Dosage: 15 MG, EVERY 8 HOURS, PRN
     Route: 042
  5. NUBAIN [Concomitant]
     Indication: PAIN
     Dosage: 4-8 MG Q 2 [HOURS], PRN
     Route: 042
     Dates: start: 20081123, end: 20081124
  6. ROCEPHIN [Concomitant]
     Dosage: 1 G, UNK
     Route: 042
     Dates: start: 20081123, end: 20081124
  7. DOXYCYCLINE [Concomitant]
     Dosage: 100 MG, BID
     Route: 048
  8. NORCO [Concomitant]
     Indication: PAIN
     Dosage: 5 TO 10 MG Q 4 HOURS, PRN

REACTIONS (14)
  - Pulmonary embolism [None]
  - Gallbladder disorder [None]
  - Cerebrovascular accident [None]
  - Heart valve incompetence [None]
  - Chest pain [None]
  - Injury [None]
  - Emotional distress [None]
  - Abdominal pain [None]
  - General physical health deterioration [None]
  - Anxiety [None]
  - Pain [None]
  - Dyspnoea [None]
  - Mental disorder [None]
  - Hypoaesthesia [None]
